FAERS Safety Report 4631640-2 (Version None)
Quarter: 2005Q2

REPORT INFORMATION
  Report Type: 
  Country: None (occurrence: None)
  Receive Date: 20050407
  Receipt Date: 20050329
  Transmission Date: 20051028
  Serious: Yes (Other)
  Sender: FDA-Public Use
  Company Number: 2005049540

PATIENT
  Age: 34 Year
  Sex: Female

DRUGS (1)
  1. NEURONTIN [Suspect]
     Indication: CONVULSION
     Dosage: 1600 MG (800 MG, 2 IN 1 D), ORAL
     Route: 048

REACTIONS (1)
  - HOT FLUSH [None]
